FAERS Safety Report 16256276 (Version 2)
Quarter: 2019Q3

REPORT INFORMATION
  Report Type: Spontaneous
  Country: US (occurrence: US)
  Receive Date: 20190430
  Receipt Date: 20190731
  Transmission Date: 20191004
  Serious: No
  Sender: FDA-Public Use
  Company Number: US-PARATEK PHARMACEUTICALS, INC.-2019PTK00008

PATIENT
  Age: 58 Year
  Sex: Female
  Weight: 73.24 kg

DRUGS (8)
  1. MYCAMINE [Concomitant]
     Active Substance: MICAFUNGIN SODIUM
  2. SINGULAIR [Concomitant]
     Active Substance: MONTELUKAST SODIUM
  3. ZYRTEC [Concomitant]
     Active Substance: CETIRIZINE HYDROCHLORIDE
  4. NUZYRA [Suspect]
     Active Substance: OMADACYCLINE
     Indication: CHRONIC SINUSITIS
     Dosage: 100 MG, 1X/DAY
     Route: 042
     Dates: start: 20190227, end: 20190320
  5. NUZYRA [Suspect]
     Active Substance: OMADACYCLINE
     Indication: OTITIS MEDIA
  6. FLONASE [Concomitant]
     Active Substance: FLUTICASONE PROPIONATE
  7. TRAZODONE [Concomitant]
     Active Substance: TRAZODONE HYDROCHLORIDE
  8. ROCEPHIN [Concomitant]
     Active Substance: CEFTRIAXONE SODIUM

REACTIONS (5)
  - Cough [Recovering/Resolving]
  - Sputum discoloured [Recovering/Resolving]
  - Drug dose titration not performed [Recovered/Resolved]
  - Incorrect product administration duration [Recovered/Resolved]
  - Off label use [Recovered/Resolved]

NARRATIVE: CASE EVENT DATE: 20190227
